FAERS Safety Report 9543185 (Version 2)
Quarter: 2013Q3

REPORT INFORMATION
  Report Type: Spontaneous
  Country: US (occurrence: US)
  Receive Date: 20130923
  Receipt Date: 20130923
  Transmission Date: 20140515
  Serious: No
  Sender: FDA-Public Use
  Company Number: US-PURDUE-USA-2012-0093696

PATIENT
  Age: 72 Year
  Sex: Female
  Weight: 71.66 kg

DRUGS (3)
  1. DILAUDID TABLET [Suspect]
     Indication: BACK PAIN
     Dosage: 2 MG, QID
     Route: 048
     Dates: end: 20120922
  2. DILAUDID TABLET [Suspect]
     Indication: NECK PAIN
  3. LEVEMIR [Concomitant]
     Indication: DIABETES MELLITUS
     Dosage: 49 UNIT, DAILY
     Route: 058

REACTIONS (6)
  - Abdominal discomfort [Unknown]
  - Vomiting [Recovered/Resolved]
  - Nausea [Recovered/Resolved]
  - Headache [Unknown]
  - Drug ineffective [Unknown]
  - Inadequate analgesia [Not Recovered/Not Resolved]
